FAERS Safety Report 19419678 (Version 3)
Quarter: 2021Q3

REPORT INFORMATION
  Report Type: Spontaneous
  Country: IT (occurrence: IT)
  Receive Date: 20210615
  Receipt Date: 20210712
  Transmission Date: 20211014
  Serious: Yes (Other)
  Sender: FDA-Public Use
  Company Number: IT-SUN PHARMACEUTICAL INDUSTRIES LTD-2021RR-300533

PATIENT
  Age: 60 Year
  Sex: Female

DRUGS (5)
  1. PRALSETINIB. [Interacting]
     Active Substance: PRALSETINIB
     Dosage: 200 MG
     Route: 065
     Dates: start: 20201112, end: 20201123
  2. PRALSETINIB. [Interacting]
     Active Substance: PRALSETINIB
     Dosage: 400 MG
     Route: 065
     Dates: start: 20201207
  3. CIPROFLOXACIN. [Suspect]
     Active Substance: CIPROFLOXACIN
     Indication: EVIDENCE BASED TREATMENT
     Dosage: 1000 MILLIGRAM, DAILY, 500 MG, BID
     Route: 065
     Dates: start: 20201025, end: 20201105
  4. PRALSETINIB. [Interacting]
     Active Substance: PRALSETINIB
     Indication: NON-SMALL CELL LUNG CANCER METASTATIC
     Dosage: 300 MG
     Route: 065
     Dates: start: 20201124, end: 20201206
  5. PRALSETINIB. [Interacting]
     Active Substance: PRALSETINIB
     Dosage: 400 MG
     Route: 065
     Dates: start: 20200814, end: 20201029

REACTIONS (6)
  - Potentiating drug interaction [Unknown]
  - Drug interaction [Recovered/Resolved]
  - Febrile neutropenia [Unknown]
  - Thrombocytopenia [Recovered/Resolved]
  - Toxicity to various agents [Recovered/Resolved]
  - Asthenia [Unknown]
